FAERS Safety Report 21704147 (Version 1)
Quarter: 2022Q4

REPORT INFORMATION
  Report Type: Spontaneous
  Country: US (occurrence: US)
  Receive Date: 20221209
  Receipt Date: 20221209
  Transmission Date: 20230113
  Serious: No
  Sender: FDA-Public Use
  Company Number: US-JNJFOC-20221203909

PATIENT
  Age: 70 Year
  Sex: Male

DRUGS (1)
  1. ZYTIGA [Suspect]
     Active Substance: ABIRATERONE ACETATE
     Indication: Product used for unknown indication
     Dosage: 250MG TAB TAKE 4 TABLETS BY MOUTH ONCE DAILY AS DIRECTED
     Route: 048
     Dates: start: 20190819

REACTIONS (2)
  - Hot flush [Unknown]
  - Cold sweat [Unknown]
